FAERS Safety Report 9209137 (Version 1)
Quarter: 2013Q2

REPORT INFORMATION
  Report Type: Spontaneous
  Country: BR (occurrence: BR)
  Receive Date: 20130404
  Receipt Date: 20130404
  Transmission Date: 20140414
  Serious: Yes (Other)
  Sender: FDA-Public Use
  Company Number: PHHY2013BR032347

PATIENT
  Sex: Male

DRUGS (1)
  1. RITALINA [Suspect]
     Dosage: UNK UKN, UNK

REACTIONS (2)
  - Depression [Unknown]
  - Ulcer [Unknown]
